FAERS Safety Report 6059781-6 (Version None)
Quarter: 2009Q1

REPORT INFORMATION
  Report Type: 
  Country: None (occurrence: None)
  Receive Date: 20090130
  Receipt Date: 20090119
  Transmission Date: 20090719
  Serious: Yes (Death, Hospitalization, Other)
  Sender: FDA-Public Use
  Company Number: US-BAXTER-2008BH010538

PATIENT
  Age: 67 Year
  Sex: Female

DRUGS (29)
  1. HEPARIN SODIUM INJECTION [Suspect]
     Indication: ACUTE MYOCARDIAL INFARCTION
     Route: 040
     Dates: start: 20080127, end: 20080127
  2. HEPARIN SODIUM INJECTION [Suspect]
     Indication: CORONARY ARTERY BYPASS
     Route: 040
     Dates: start: 20080127, end: 20080127
  3. HEPARIN SODIUM INJECTION [Suspect]
     Route: 065
     Dates: start: 20080316, end: 20080316
  4. HEPARIN SODIUM INJECTION [Suspect]
     Route: 065
     Dates: start: 20080316, end: 20080316
  5. HEPARIN SODIUM INJECTION [Suspect]
     Route: 065
     Dates: start: 20080307, end: 20080307
  6. HEPARIN SODIUM INJECTION [Suspect]
     Route: 065
     Dates: start: 20080307, end: 20080307
  7. HEPARIN SODIUM INJECTION [Suspect]
     Route: 065
     Dates: start: 20080307, end: 20080307
  8. HEPARIN SODIUM INJECTION [Suspect]
     Route: 065
     Dates: start: 20080307, end: 20080307
  9. HEPARIN SODIUM INJECTION [Suspect]
     Route: 065
     Dates: start: 20080317, end: 20080317
  10. HEPARIN SODIUM INJECTION [Suspect]
     Route: 065
     Dates: start: 20080317, end: 20080317
  11. HEPARIN SODIUM INJECTION [Suspect]
     Route: 065
     Dates: start: 20080319, end: 20080319
  12. HEPARIN SODIUM INJECTION [Suspect]
     Route: 065
     Dates: start: 20080319, end: 20080319
  13. HEPARIN SODIUM INJECTION [Suspect]
     Route: 065
     Dates: start: 20080321, end: 20080321
  14. HEPARIN SODIUM INJECTION [Suspect]
     Route: 065
     Dates: start: 20080321, end: 20080321
  15. HEPARIN SODIUM INJECTION [Suspect]
     Route: 065
     Dates: start: 20080322, end: 20080322
  16. HEPARIN SODIUM INJECTION [Suspect]
     Route: 065
     Dates: start: 20080322, end: 20080322
  17. HEPARIN SODIUM 1,000 UNITS AND SODIUM CHLORIDE 0.9% [Suspect]
     Indication: PROPHYLAXIS
     Route: 042
     Dates: start: 20080127, end: 20080127
  18. HEPARIN SODIUM 1,000 UNITS AND SODIUM CHLORIDE 0.9% [Suspect]
     Route: 042
     Dates: start: 20080127, end: 20080127
  19. HEPARIN SODIUM 1,000 UNITS AND SODIUM CHLORIDE 0.9% [Suspect]
     Route: 042
     Dates: start: 20080127, end: 20080101
  20. HEPARIN SODIUM 1,000 UNITS AND SODIUM CHLORIDE 0.9% [Suspect]
     Route: 042
     Dates: start: 20080127, end: 20080101
  21. HEPARIN SODIUM 1,000 UNITS AND SODIUM CHLORIDE 0.9% [Suspect]
     Route: 042
     Dates: start: 20080325, end: 20080101
  22. HEPARIN SODIUM 1,000 UNITS AND SODIUM CHLORIDE 0.9% [Suspect]
     Route: 042
     Dates: start: 20080325, end: 20080101
  23. HEPARIN SODIUM 5,000 UNITS IN DEXTROSE 5% [Suspect]
     Indication: MYOCARDIAL INFARCTION
     Route: 042
     Dates: start: 20080127, end: 20080127
  24. LEVOTHYROXINE SODIUM [Concomitant]
     Indication: DRUG USE FOR UNKNOWN INDICATION
     Route: 065
  25. BENICAR [Concomitant]
     Indication: DRUG USE FOR UNKNOWN INDICATION
     Route: 065
  26. PLAVIX [Concomitant]
     Indication: DRUG USE FOR UNKNOWN INDICATION
     Route: 065
  27. ASPIRIN [Concomitant]
     Indication: DRUG USE FOR UNKNOWN INDICATION
     Route: 065
  28. ZOCOR [Concomitant]
     Indication: DRUG USE FOR UNKNOWN INDICATION
     Route: 065
  29. METOPROLOL [Concomitant]
     Indication: DRUG USE FOR UNKNOWN INDICATION
     Route: 065

REACTIONS (16)
  - BACTERAEMIA [None]
  - COAGULOPATHY [None]
  - CORONARY ARTERY DISEASE [None]
  - CRITICAL ILLNESS POLYNEUROPATHY [None]
  - ENCEPHALOPATHY [None]
  - GANGRENE [None]
  - HEPARIN-INDUCED THROMBOCYTOPENIA [None]
  - HEPATIC FUNCTION ABNORMAL [None]
  - HYPOTHYROIDISM [None]
  - LUNG INFILTRATION [None]
  - QUADRIPARESIS [None]
  - RENAL FAILURE [None]
  - RESPIRATORY DISTRESS [None]
  - RESPIRATORY FAILURE [None]
  - SKIN NECROSIS [None]
  - SYSTEMIC CANDIDA [None]
